FAERS Safety Report 8463751-8 (Version None)
Quarter: 2012Q2

REPORT INFORMATION
  Report Type: 
  Country: None (occurrence: None)
  Receive Date: 20120625
  Receipt Date: 20120624
  Transmission Date: 20120825
  Serious: No
  Sender: FDA-Public Use
  Company Number: US-PFIZER INC-2012151170

PATIENT
  Sex: Male

DRUGS (2)
  1. LYRICA [Suspect]
     Indication: OFF LABEL USE
     Dosage: UNK
  2. LYRICA [Suspect]
     Indication: HERPES ZOSTER

REACTIONS (3)
  - TREMOR [None]
  - HEADACHE [None]
  - EYE PAIN [None]
